FAERS Safety Report 16949812 (Version 1)
Quarter: 2019Q4

REPORT INFORMATION
  Report Type: Spontaneous
  Country: BR (occurrence: BR)
  Receive Date: 20191023
  Receipt Date: 20191023
  Transmission Date: 20200122
  Serious: Yes (Other)
  Sender: FDA-Public Use
  Company Number: BR-ROCHE-2443139

PATIENT
  Age: 32 Year
  Sex: Male

DRUGS (2)
  1. RIVOTRIL [Suspect]
     Active Substance: CLONAZEPAM
     Indication: ANXIETY
     Route: 060
     Dates: start: 20190901
  2. RIVOTRIL [Suspect]
     Active Substance: CLONAZEPAM
     Indication: PANIC DISORDER

REACTIONS (1)
  - Intentional self-injury [Unknown]
